FAERS Safety Report 23688231 (Version 1)
Quarter: 2024Q1

REPORT INFORMATION
  Report Type: Spontaneous
  Country: GB (occurrence: GB)
  Receive Date: 20240329
  Receipt Date: 20240329
  Transmission Date: 20240410
  Serious: Yes (Other)
  Sender: FDA-Public Use
  Company Number: GB-SUN PHARMACEUTICAL INDUSTRIES LTD-2024RR-434087

PATIENT
  Age: 75 Year
  Sex: Male
  Weight: 80 kg

DRUGS (10)
  1. CIPROFLOXACIN [Suspect]
     Active Substance: CIPROFLOXACIN
     Indication: Product used for unknown indication
     Dosage: 500 MILLIGRAM, TABLET
     Route: 065
  2. CARBOCYSTEINE [Concomitant]
     Active Substance: CARBOCYSTEINE
     Indication: Product used for unknown indication
     Dosage: 2 DOSAGE FORM, TID
     Route: 065
     Dates: start: 20210817
  3. CETIRIZINE [Concomitant]
     Active Substance: CETIRIZINE HYDROCHLORIDE
     Indication: Product used for unknown indication
     Dosage: 1 DOSAGE FORM, QD FOR 7 DAYS
     Route: 065
     Dates: start: 20231218
  4. CHLORPHENIRAMINE MALEATE [Concomitant]
     Active Substance: CHLORPHENIRAMINE MALEATE
     Indication: Product used for unknown indication
     Dosage: TAKE ONE EVERY 4-6 HRS UNTIL SWELLING/SYMPTOMS ...
     Route: 065
     Dates: start: 20231218
  5. DOXYCYCLINE [Concomitant]
     Active Substance: DOXYCYCLINE
     Indication: Infection
     Dosage: 1 DOSAGE FORM, BID, FOR 10 DAYS
     Route: 065
     Dates: start: 20231218
  6. UNSPECIFIED INGREDIENT [Concomitant]
     Active Substance: UNSPECIFIED INGREDIENT
     Indication: Product used for unknown indication
     Dosage: USE AS DIRECTED
     Route: 065
     Dates: start: 20231204
  7. BECLOMETHASONE\FORMOTEROL [Concomitant]
     Active Substance: BECLOMETHASONE\FORMOTEROL
     Indication: Product used for unknown indication
     Dosage: 2 DOSAGE FORM, BID, PUFFS
     Route: 055
     Dates: start: 20230728, end: 20230920
  8. LUFORBEC [Concomitant]
     Indication: Product used for unknown indication
     Dosage: 2 DOSAGE FORM, BID, PUFFS - EQUIVALENT TO FO...
     Route: 055
     Dates: start: 20230920
  9. PREDNISOLONE [Concomitant]
     Active Substance: PREDNISOLONE
     Indication: Product used for unknown indication
     Dosage: 8 DOSAGE FORM, QD RESCUE PACK.
     Route: 065
     Dates: start: 20231204, end: 20231209
  10. ALBUTEROL [Concomitant]
     Active Substance: ALBUTEROL
     Indication: Product used for unknown indication
     Dosage: ONE TO TWO DOSES
     Route: 055
     Dates: start: 20230704

REACTIONS (6)
  - Musculoskeletal stiffness [Unknown]
  - Lip swelling [Unknown]
  - Dysphagia [Unknown]
  - Neck pain [Unknown]
  - Enlarged uvula [Unknown]
  - Odynophagia [Unknown]
